FAERS Safety Report 4500757-5 (Version None)
Quarter: 2004Q4

REPORT INFORMATION
  Report Type: 
  Country: None (occurrence: None)
  Receive Date: 20041109
  Receipt Date: 20041025
  Transmission Date: 20050328
  Serious: Yes (Hospitalization, Other)
  Sender: FDA-Public Use
  Company Number: USA041082049

PATIENT
  Age: 63 Year
  Sex: Female
  Weight: 89 kg

DRUGS (3)
  1. HUMULIN 70/30 [Suspect]
     Dates: end: 20040801
  2. HUMULIN N [Suspect]
     Dosage: 40 U/2 DAY
     Dates: start: 20040801
  3. NOVOLIN 70/30 [Concomitant]

REACTIONS (22)
  - BLISTER [None]
  - BLOOD GLUCOSE DECREASED [None]
  - DYSGEUSIA [None]
  - DYSPNOEA [None]
  - FATIGUE [None]
  - FEELING ABNORMAL [None]
  - HYPERSENSITIVITY [None]
  - HYPERTENSION [None]
  - HYPOTHYROIDISM [None]
  - INSOMNIA [None]
  - LOCALISED OEDEMA [None]
  - LOSS OF CONSCIOUSNESS [None]
  - NASAL CONGESTION [None]
  - PHARMACEUTICAL PRODUCT COMPLAINT [None]
  - PNEUMONIA [None]
  - PULMONARY OEDEMA [None]
  - RASH PRURITIC [None]
  - RASH VESICULAR [None]
  - SKIN DISCOLOURATION [None]
  - SKIN DISORDER [None]
  - TREMOR [None]
  - WHEEZING [None]
